FAERS Safety Report 9017175 (Version 1)
Quarter: 2013Q1

REPORT INFORMATION
  Report Type: Report from Study
  Country: US (occurrence: US)
  Receive Date: 20130117
  Receipt Date: 20130117
  Transmission Date: 20140127
  Serious: Yes (Hospitalization)
  Sender: FDA-Public Use
  Company Number: US-ABBOTT-13P-163-1034476-00

PATIENT
  Age: 60 Year
  Sex: Female
  Weight: 67.19 kg

DRUGS (13)
  1. HUMIRA [Suspect]
     Indication: PSORIATIC ARTHROPATHY
     Dates: start: 2010, end: 201202
  2. HUMIRA [Suspect]
     Indication: PSORIASIS
     Dates: start: 20120104
  3. PREDNISONE [Concomitant]
     Indication: PSORIATIC ARTHROPATHY
  4. PREDNISONE [Concomitant]
     Indication: PSORIASIS
  5. SULFASALAZINE [Concomitant]
     Indication: PSORIATIC ARTHROPATHY
  6. ACTIGALL [Concomitant]
     Indication: CHOLELITHIASIS
  7. ACTIGALL [Concomitant]
     Indication: PROPHYLAXIS
  8. VOLTAREN [Concomitant]
     Indication: PAIN
  9. LISINOPRIL [Concomitant]
     Indication: HYPERTENSION
  10. ATORVASTATIN [Concomitant]
     Indication: BLOOD CHOLESTEROL INCREASED
  11. VITAMIN D [Concomitant]
     Indication: VITAMIN SUPPLEMENTATION
  12. CALCIUM + VITAMIN D [Concomitant]
     Indication: MINERAL SUPPLEMENTATION
  13. VITAMIN B12 [Concomitant]
     Indication: VITAMIN SUPPLEMENTATION

REACTIONS (4)
  - Neck pain [Recovered/Resolved]
  - Pharyngeal abscess [Recovered/Resolved]
  - Injection site mass [Recovered/Resolved]
  - Injection site pain [Recovered/Resolved]
